FAERS Safety Report 9748808 (Version 2)
Quarter: 2013Q4

REPORT INFORMATION
  Report Type: Spontaneous
  Country: US (occurrence: US)
  Receive Date: 20131212
  Receipt Date: 20131212
  Transmission Date: 20140711
  Serious: No
  Sender: FDA-Public Use
  Company Number: US-INCYTE CORPORATION-2013IN001706

PATIENT
  Age: 72 Year
  Sex: Male

DRUGS (12)
  1. JAKAFI [Suspect]
     Indication: MYELOFIBROSIS
     Dosage: 5 MG, ONE PILL EVERY NIGHT, TWO PILLS EVERY OTHER MORNING
     Route: 048
     Dates: start: 20121015
  2. JAKAFI [Suspect]
     Dosage: 20 MG, BID
     Route: 048
  3. COLESTIPOL [Concomitant]
     Dosage: UNK
     Route: 048
  4. BACTRIM DS [Concomitant]
     Route: 048
  5. MULTIVITAMINS [Concomitant]
     Route: 048
  6. CARVEDILOL [Concomitant]
     Dosage: 3.125 MG, UNK
     Route: 048
  7. SIMVASTATIN [Concomitant]
     Dosage: 20 MG, UNK
     Route: 048
  8. PLAVIX [Concomitant]
     Dosage: 75 MG, UNK
     Route: 048
  9. CALCIUM [Concomitant]
     Route: 048
  10. ASPIRIN [Concomitant]
     Dosage: 81 MG, UNK
     Route: 048
  11. OMEGA 3 [Concomitant]
     Dosage: UNK
     Route: 048
  12. VITAMIN D3 [Concomitant]
     Dosage: 1000 IU, UNK
     Route: 048

REACTIONS (3)
  - Drug administration error [Unknown]
  - Paraesthesia [Unknown]
  - Vision blurred [Unknown]
